FAERS Safety Report 8496515-X (Version None)
Quarter: 2012Q3

REPORT INFORMATION
  Report Type: 
  Country: None (occurrence: None)
  Receive Date: 20120709
  Receipt Date: 20120629
  Transmission Date: 20120928
  Serious: Yes (Hospitalization)
  Sender: FDA-Public Use
  Company Number: US-JNJFOC-20120311884

PATIENT
  Age: 22 Year
  Sex: Male
  Weight: 61.3 kg

DRUGS (3)
  1. ACETAMINOPHEN [Suspect]
     Indication: PRODUCT USED FOR UNKNOWN INDICATION
     Route: 048
  2. DIPHENHYDRAMINE [Suspect]
     Indication: PRODUCT USED FOR UNKNOWN INDICATION
     Route: 048
  3. ACETAMINOPHEN [Suspect]
     Route: 048

REACTIONS (5)
  - COMA [None]
  - ASPARTATE AMINOTRANSFERASE INCREASED [None]
  - SUICIDE ATTEMPT [None]
  - ALANINE AMINOTRANSFERASE INCREASED [None]
  - MULTIPLE DRUG OVERDOSE [None]
